FAERS Safety Report 5234760-7 (Version None)
Quarter: 2007Q1

REPORT INFORMATION
  Report Type: 
  Country: None (occurrence: None)
  Receive Date: 20070209
  Receipt Date: 20070130
  Transmission Date: 20070707
  Serious: Yes (Other)
  Sender: FDA-Public Use
  Company Number: US-ELI_LILLY_AND_COMPANY-US200701006370

PATIENT
  Age: 56 Year
  Sex: Male

DRUGS (5)
  1. HUMULIN 70/30 [Suspect]
     Indication: DIABETES MELLITUS NON-INSULIN-DEPENDENT
     Dosage: 35 U, EACH MORNING
     Dates: start: 20040101
  2. HUMULIN 70/30 [Suspect]
     Dosage: 40 U, EACH EVENING
     Dates: start: 20040101
  3. HUMULIN 70/30 [Suspect]
  4. NOVOLIN 50/50 [Concomitant]
     Indication: DIABETES MELLITUS
  5. HYZAAR [Concomitant]
     Indication: HYPERTENSION

REACTIONS (6)
  - BLOOD COUNT ABNORMAL [None]
  - BLOOD GLUCOSE DECREASED [None]
  - BLOOD GLUCOSE INCREASED [None]
  - BLOOD TRIGLYCERIDES INCREASED [None]
  - HEPATITIS C [None]
  - TOOTH LOSS [None]
